FAERS Safety Report 25941040 (Version 1)
Quarter: 2025Q4

REPORT INFORMATION
  Report Type: Spontaneous
  Country: US (occurrence: None)
  Receive Date: 20251018
  Receipt Date: 20251018
  Transmission Date: 20260118
  Serious: Yes (unspecified)
  Sender: FDA-CTU
  Company Number: None

PATIENT
  Age: 8 Month
  Sex: Female
  Weight: 9.45 kg

DRUGS (1)
  1. BEYFORTUS [Suspect]
     Active Substance: NIRSEVIMAB-ALIP

REACTIONS (4)
  - Asthma [None]
  - SARS-CoV-2 test positive [None]
  - Human rhinovirus test positive [None]
  - Haemophilus test positive [None]

NARRATIVE: CASE EVENT DATE: 20250916
